FAERS Safety Report 7455941-8 (Version None)
Quarter: 2011Q2

REPORT INFORMATION
  Report Type: 
  Country: None (occurrence: None)
  Receive Date: 20110503
  Receipt Date: 20110427
  Transmission Date: 20111010
  Serious: Yes (Other)
  Sender: FDA-Public Use
  Company Number: PHHY2011GB35245

PATIENT
  Age: 67 Year
  Sex: Male

DRUGS (3)
  1. AMIFAMPRIDINE [Suspect]
     Dosage: 20 MG, TID
     Route: 048
     Dates: start: 20100811, end: 20110112
  2. 3,4-DIAMINOPYRIDINE [Concomitant]
  3. WARFARIN [Suspect]
     Indication: DEEP VEIN THROMBOSIS
     Dosage: UNK
     Route: 048
     Dates: start: 20060101

REACTIONS (2)
  - DRUG INTERACTION [None]
  - COAGULATION TIME ABNORMAL [None]
